FAERS Safety Report 6249243-5 (Version None)
Quarter: 2009Q2

REPORT INFORMATION
  Report Type: 
  Country: None (occurrence: None)
  Receive Date: 20090629
  Receipt Date: 20090623
  Transmission Date: 20091009
  Serious: Yes (Other)
  Sender: FDA-Public Use
  Company Number: GB-MERCK-0906GBR00102

PATIENT
  Age: 67 Year
  Sex: Male

DRUGS (5)
  1. ZETIA [Suspect]
     Indication: BLOOD CHOLESTEROL INCREASED
     Route: 048
     Dates: start: 20090101, end: 20090101
  2. ZETIA [Suspect]
     Route: 048
     Dates: start: 20090101
  3. ASPIRIN [Concomitant]
     Indication: CARDIAC DISORDER
     Route: 048
     Dates: start: 20070601
  4. CANDESARTAN [Concomitant]
     Indication: CARDIAC DISORDER
     Route: 048
     Dates: start: 20070601
  5. LANSOPRAZOLE [Concomitant]
     Indication: CARDIAC DISORDER
     Route: 048
     Dates: start: 20070601

REACTIONS (1)
  - EYE PAIN [None]
